FAERS Safety Report 12712928 (Version 1)
Quarter: 2016Q3

REPORT INFORMATION
  Report Type: Spontaneous
  Country: US (occurrence: US)
  Receive Date: 20160902
  Receipt Date: 20160902
  Transmission Date: 20161109
  Serious: No
  Sender: FDA-Public Use
  Company Number: US-B.I. PHARMACEUTICALS,INC./RIDGEFIELD-2016-BI-55427BP

PATIENT
  Sex: Female

DRUGS (5)
  1. NORVASC [Concomitant]
     Active Substance: AMLODIPINE BESYLATE
     Indication: HYPERTENSION
     Route: 048
  2. MIRAPEX [Suspect]
     Active Substance: PRAMIPEXOLE DIHYDROCHLORIDE
     Dosage: 3 MG
     Route: 048
     Dates: end: 201511
  3. ZOLOFT [Concomitant]
     Active Substance: SERTRALINE HYDROCHLORIDE
     Indication: DEPRESSION
     Route: 048
  4. LOPRESSOR [Concomitant]
     Active Substance: METOPROLOL TARTRATE
     Indication: HYPERTENSION
     Route: 048
  5. MIRAPEX [Suspect]
     Active Substance: PRAMIPEXOLE DIHYDROCHLORIDE
     Indication: RESTLESS LEGS SYNDROME
     Dosage: 1 MG
     Route: 048
     Dates: end: 201511

REACTIONS (16)
  - Fatigue [Not Recovered/Not Resolved]
  - Amnesia [Recovered/Resolved]
  - Thinking abnormal [Recovered/Resolved]
  - Delusion [Recovered/Resolved]
  - Euphoric mood [Recovered/Resolved]
  - Feeling abnormal [Recovered/Resolved]
  - Oedema peripheral [Recovered/Resolved]
  - Loss of employment [Unknown]
  - Confusional state [Not Recovered/Not Resolved]
  - Narcolepsy [Recovered/Resolved]
  - Dyspnoea [Recovered/Resolved]
  - Asthenia [Recovered/Resolved]
  - Hallucination [Recovered/Resolved]
  - Homeless [Unknown]
  - Abnormal behaviour [Recovered/Resolved]
  - Pica [Recovered/Resolved]
